FAERS Safety Report 17558731 (Version 1)
Quarter: 2020Q1

REPORT INFORMATION
  Report Type: Report from Study
  Country: US (occurrence: US)
  Receive Date: 20200318
  Receipt Date: 20200318
  Transmission Date: 20200409
  Serious: Yes (Other)
  Sender: FDA-Public Use
  Company Number: US-INCYTE CORPORATION-2020IN002465

PATIENT

DRUGS (2)
  1. JAKAFI [Suspect]
     Active Substance: RUXOLITINIB
     Indication: POLYCYTHAEMIA VERA
     Dosage: 10 MILLIGRAM, BID
     Route: 065
  2. JAKAFI [Suspect]
     Active Substance: RUXOLITINIB
     Dosage: 25 MILLIGRAM, BID
     Route: 065

REACTIONS (8)
  - Bone pain [Unknown]
  - White blood cell count decreased [Unknown]
  - Haematocrit abnormal [Unknown]
  - Arthralgia [Unknown]
  - Fatigue [Unknown]
  - Hyperhidrosis [Unknown]
  - Night sweats [Unknown]
  - Platelet count decreased [Unknown]
